FAERS Safety Report 9206892 (Version 2)
Quarter: 2014Q1

REPORT INFORMATION
  Report Type: Spontaneous
  Country: US (occurrence: US)
  Receive Date: 20130403
  Receipt Date: 20140205
  Transmission Date: 20141002
  Serious: Yes (Hospitalization, Other)
  Sender: FDA-Public Use
  Company Number: US-BAYER-2013-039262

PATIENT
  Age: 19 Year
  Sex: Female

DRUGS (7)
  1. YASMIN [Suspect]
     Dosage: UNK
     Dates: start: 2008, end: 2011
  2. OCELLA [Suspect]
     Dosage: UNK
     Dates: start: 2008, end: 2011
  3. YAZ [Suspect]
     Dosage: UNK
     Dates: start: 2008, end: 2011
  4. AMOXICILLIN [Concomitant]
     Dosage: 500 MG, DAILY
     Route: 048
     Dates: start: 20111003
  5. LIDOCAINE VISCOUS [Concomitant]
     Indication: OROPHARYNGEAL PAIN
     Dosage: 2 %, 2 TEASPOONS EVERY 6 TO 8 HOURS AS NEEDED
     Dates: start: 20111003
  6. METRONIDAZOLE [Concomitant]
     Dosage: 0.75 %, TWICE
     Route: 067
     Dates: start: 20111026
  7. AZITHROMYCIN [Concomitant]
     Dosage: 250 MG, TABLETS AS ONE DOSE WITH FOOD
     Route: 048
     Dates: start: 20111026

REACTIONS (5)
  - Gallbladder disorder [None]
  - Cholecystitis chronic [None]
  - Injury [None]
  - Pain [None]
  - Emotional distress [None]
